FAERS Safety Report 16287458 (Version 2)
Quarter: 2019Q2

REPORT INFORMATION
  Report Type: Spontaneous
  Country: GB (occurrence: GB)
  Receive Date: 20190508
  Receipt Date: 20190528
  Transmission Date: 20190711
  Serious: Yes (Life-Threatening, Hospitalization, Other)
  Sender: FDA-Public Use
  Company Number: GB-BAUSCH-BL-2019-013286

PATIENT
  Age: 16 Year
  Sex: Male

DRUGS (7)
  1. METRONIDAZOLE. [Concomitant]
     Active Substance: METRONIDAZOLE
     Indication: FISTULA
  2. CIPROFLOXACIN. [Concomitant]
     Active Substance: CIPROFLOXACIN
     Indication: ANAL ABSCESS
  3. MESALAZINE [Suspect]
     Active Substance: MESALAMINE
     Indication: CROHN^S DISEASE
     Dosage: ADD-ON THERAPY
     Route: 065
  4. AZATHIOPRINE. [Concomitant]
     Active Substance: AZATHIOPRINE
     Indication: CROHN^S DISEASE
     Dosage: REACHING A MAXIMUM DOSE OF 150 MG DAILY.
  5. AZATHIOPRINE. [Concomitant]
     Active Substance: AZATHIOPRINE
     Dosage: INCREASING DOSES OF AZATHIOPRINE
  6. METRONIDAZOLE. [Concomitant]
     Active Substance: METRONIDAZOLE
     Indication: ANAL ABSCESS
     Dosage: OCCASIONALLY RECEIVED
  7. CIPROFLOXACIN. [Concomitant]
     Active Substance: CIPROFLOXACIN
     Indication: FISTULA
     Dosage: OCCASIONALLY RECEIVED

REACTIONS (3)
  - Myocarditis [Recovered/Resolved]
  - Drug hypersensitivity [Recovered/Resolved]
  - Cardiomyopathy [Recovered/Resolved]
